FAERS Safety Report 14972236 (Version 1)
Quarter: 2018Q2

REPORT INFORMATION
  Report Type: Report from Study
  Country: None (occurrence: US)
  Receive Date: 20180605
  Receipt Date: 20180605
  Transmission Date: 20180711
  Serious: Yes (Other)
  Sender: FDA-Public Use
  Company Number: US-ABBVIE-18K-163-2375323-00

PATIENT
  Sex: Female

DRUGS (1)
  1. HUMIRA [Suspect]
     Active Substance: ADALIMUMAB
     Indication: PSORIASIS
     Route: 058
     Dates: end: 20180531

REACTIONS (4)
  - Erythema [Unknown]
  - Skin burning sensation [Unknown]
  - Rash [Unknown]
  - T-cell lymphoma [Unknown]

NARRATIVE: CASE EVENT DATE: 20180531
